FAERS Safety Report 21925407 (Version 1)
Quarter: 2023Q1

REPORT INFORMATION
  Report Type: Spontaneous
  Country: US (occurrence: None)
  Receive Date: 20230127
  Receipt Date: 20230127
  Transmission Date: 20230417
  Serious: Yes (Hospitalization)
  Sender: FDA-Public Use
  Company Number: None

PATIENT
  Sex: Female

DRUGS (1)
  1. NOVOSEVEN [Suspect]
     Active Substance: COAGULATION FACTOR VIIA RECOMBINANT HUMAN
     Indication: Platelet disorder
     Dosage: 4MG AS NEEDED  IV PUSH?
     Route: 050
     Dates: start: 20221007

REACTIONS (2)
  - Appendicitis [None]
  - Epistaxis [None]
